FAERS Safety Report 10083471 (Version 1)
Quarter: 2014Q2

REPORT INFORMATION
  Report Type: Spontaneous
  Country: IN (occurrence: None)
  Receive Date: 20140415
  Receipt Date: 20140415
  Transmission Date: 20141212
  Serious: Yes (Other)
  Sender: FDA-Public Use
  Company Number: 2014-PEL-000052

PATIENT
  Sex: 0

DRUGS (1)
  1. ISOFLURANE [Suspect]
     Indication: ANAESTHESIA

REACTIONS (1)
  - Hyperthermia malignant [None]
